FAERS Safety Report 23332719 (Version 3)
Quarter: 2024Q1

REPORT INFORMATION
  Report Type: Spontaneous
  Country: AR (occurrence: AR)
  Receive Date: 20231222
  Receipt Date: 20240122
  Transmission Date: 20240410
  Serious: No
  Sender: FDA-Public Use
  Company Number: AR-PFIZER INC-PV202300196739

PATIENT
  Age: 10 Year
  Sex: Female

DRUGS (1)
  1. GENOTROPIN [Suspect]
     Active Substance: SOMATROPIN
     Indication: Turner^s syndrome
     Dosage: 1.5 MG (1.5 MG, 7 TIMES PER WEEK, ALSO REPORTED AS 1 TO 1.4 MG, 7 TIMES PER WEEK)
     Dates: start: 20220122

REACTIONS (3)
  - Injection site bruising [Not Recovered/Not Resolved]
  - Device malfunction [Not Recovered/Not Resolved]
  - Device mechanical issue [Not Recovered/Not Resolved]
